FAERS Safety Report 6305855-1 (Version None)
Quarter: 2009Q3

REPORT INFORMATION
  Report Type: 
  Country: None (occurrence: None)
  Receive Date: 20090812
  Receipt Date: 20090803
  Transmission Date: 20100115
  Serious: Yes (Other)
  Sender: FDA-Public Use
  Company Number: US-BRISTOL-MYERS SQUIBB COMPANY-14735658

PATIENT
  Age: 42 Year
  Sex: Female

DRUGS (4)
  1. TRIAMCINOLONE ACETONIDE [Suspect]
     Indication: ROTATOR CUFF SYNDROME
  2. RITONAVIR [Interacting]
     Indication: HIV INFECTION
     Dosage: RITONAVIR-BOOSTED PROTEASE INHIBITOR
  3. ATAZANAVIR [Concomitant]
     Indication: HIV INFECTION
  4. TENOFOVIR DF + EMTRICITABINE [Concomitant]
     Indication: HIV INFECTION

REACTIONS (2)
  - ADRENAL SUPPRESSION [None]
  - DRUG INTERACTION [None]
